FAERS Safety Report 7425269-0 (Version None)
Quarter: 2011Q2

REPORT INFORMATION
  Report Type: 
  Country: None (occurrence: None)
  Receive Date: 20110420
  Receipt Date: 20100112
  Transmission Date: 20111010
  Serious: No
  Sender: FDA-Public Use
  Company Number: US-BAYER-201011465NA

PATIENT
  Sex: Female

DRUGS (2)
  1. YASMIN [Suspect]
     Dosage: UNK
     Dates: start: 20090101
  2. YAZ [Suspect]
     Dosage: UNK

REACTIONS (2)
  - NAUSEA [None]
  - ABDOMINAL PAIN [None]
